FAERS Safety Report 4913550-6 (Version None)
Quarter: 2006Q1

REPORT INFORMATION
  Report Type: 
  Country: None (occurrence: None)
  Receive Date: 20060210
  Receipt Date: 20060126
  Transmission Date: 20060701
  Serious: Yes (Other)
  Sender: FDA-Public Use
  Company Number: L05-ESP-05762-01

PATIENT
  Age: 74 Year
  Sex: Male

DRUGS (6)
  1. MEMANTINE HCL [Suspect]
     Indication: COGNITIVE DETERIORATION
     Dosage: 5 MG QD
  2. MEMANTINE HCL [Suspect]
     Indication: DEMENTIA ALZHEIMER'S TYPE
     Dosage: 5 MG QD
  3. RISPERIDONE [Concomitant]
  4. DONEPEZIL HCL [Concomitant]
  5. RIVASTIGMINE [Concomitant]
  6. ENALAPRIL MALEATE [Concomitant]

REACTIONS (7)
  - AGITATION [None]
  - CEREBRAL ATROPHY [None]
  - CONDITION AGGRAVATED [None]
  - DEMENTIA [None]
  - DEPRESSED LEVEL OF CONSCIOUSNESS [None]
  - HALLUCINATION, VISUAL [None]
  - PARKINSONISM [None]
